FAERS Safety Report 6583475-1 (Version None)
Quarter: 2010Q1

REPORT INFORMATION
  Report Type: 
  Country: None (occurrence: None)
  Receive Date: 20100216
  Receipt Date: 20100212
  Transmission Date: 20100710
  Serious: Yes (Other)
  Sender: FDA-Public Use
  Company Number: FR-SANOFI-AVENTIS-2010SA008346

PATIENT
  Age: 86 Year
  Sex: Female

DRUGS (1)
  1. FASTURTEC [Suspect]
     Indication: GOUTY ARTHRITIS
     Dosage: DOSE:1.5 MILLIGRAM(S)/MILLILITRE
     Route: 042
     Dates: start: 20090101

REACTIONS (2)
  - CARDIAC FAILURE [None]
  - OFF LABEL USE [None]
